FAERS Safety Report 8014330-8 (Version None)
Quarter: 2011Q4

REPORT INFORMATION
  Report Type: 
  Country: None (occurrence: None)
  Receive Date: 20111229
  Receipt Date: 20111213
  Transmission Date: 20120403
  Serious: Yes (Death, Hospitalization)
  Sender: FDA-Public Use
  Company Number: JP-PFIZER INC-2011294184

PATIENT
  Age: 74 Year
  Sex: Female
  Weight: 45 kg

DRUGS (30)
  1. DEXAMETHASONE SODIUM PHOSPHATE [Concomitant]
     Indication: PREMEDICATION
     Dosage: 6.6 MG, UNK
     Route: 041
     Dates: start: 20110428, end: 20110630
  2. GRANISETRON [Concomitant]
     Indication: PREMEDICATION
     Dosage: 3 MG, UNK
     Route: 041
     Dates: start: 20110428, end: 20110630
  3. ONE-ALPHA [Concomitant]
     Indication: OSTEOPOROSIS
     Dosage: 1 UG, UNK
     Route: 048
  4. PRAVASTATIN SODIUM [Concomitant]
     Indication: HYPERLIPIDAEMIA
     Dosage: 10 MG, UNK
     Route: 048
  5. MINOCYCLINE HCL [Concomitant]
     Indication: INFECTION
     Dosage: 100 MG, 2X/DAY
     Route: 048
     Dates: start: 20110427, end: 20110513
  6. FLURBIPROFEN [Concomitant]
     Indication: PYREXIA
     Dosage: 50 MG, UNK
     Route: 041
     Dates: start: 20110710, end: 20110710
  7. ALBUMIN (HUMAN) [Concomitant]
     Indication: PROPHYLAXIS
     Dosage: 100 ML, UNK
     Route: 041
     Dates: start: 20110725, end: 20110727
  8. CAMPTOSAR [Suspect]
     Dosage: 100 MG/BODY (77.5 MG/M2)
     Route: 041
     Dates: start: 20110616, end: 20110630
  9. PANITUMUMAB [Suspect]
     Dosage: 240 MG/BODY
     Route: 041
     Dates: start: 20110616, end: 20110630
  10. OLMESARTAN MEDOXOMIL [Concomitant]
     Indication: HYPERTENSION
     Dosage: 20 MG, UNK
     Route: 048
  11. BONALON 35MG [Concomitant]
     Indication: OSTEOPOROSIS
     Dosage: 35 MG, UNK
     Route: 048
  12. FAMOTIDINE [Concomitant]
     Indication: GASTROOESOPHAGEAL REFLUX DISEASE
     Dosage: 20 MG, UNK
     Route: 041
     Dates: start: 20110514, end: 20110515
  13. MAXIPIME [Concomitant]
     Indication: INFECTION
     Dosage: 2 G, UNK
     Route: 041
     Dates: start: 20110514, end: 20110714
  14. PANITUMUMAB [Suspect]
     Indication: COLON CANCER
     Dosage: 270 MG/BODY
     Route: 041
     Dates: start: 20110428, end: 20110428
  15. LENDORMIN [Concomitant]
     Indication: INSOMNIA
     Dosage: 0.25 MG, UNK
     Route: 048
     Dates: start: 20100913
  16. SODIUM BICARBONATE [Concomitant]
     Indication: PROPHYLAXIS
     Dosage: UNK
     Route: 048
     Dates: start: 20110106
  17. LANSOPRAZOLE [Concomitant]
     Indication: GASTROOESOPHAGEAL REFLUX DISEASE
     Dosage: 30 MG, UNK
     Route: 041
     Dates: start: 20110715, end: 20110720
  18. CAMPTOSAR [Suspect]
     Indication: COLON CANCER
     Dosage: 160 MG/BODY (124 MG/M2)
     Route: 041
     Dates: start: 20110428, end: 20110428
  19. TS-1 [Suspect]
     Indication: COLON CANCER
     Dosage: 50 MG, 2X/DAY (DAILY ADMINISTRATION)
     Route: 048
     Dates: start: 20110428, end: 20110512
  20. CIPROFLOXACIN HCL [Concomitant]
     Indication: INFECTION
     Dosage: 300 MG, 2X/DAY
     Route: 041
     Dates: start: 20110721, end: 20110727
  21. BETAMETHASONE [Concomitant]
     Indication: ENCEPHALITIS
     Dosage: 4 MG, 3X/DAY
     Route: 041
     Dates: start: 20110808, end: 20110808
  22. FLUMARIN [Concomitant]
     Indication: INFECTION
     Dosage: 2 G, UNK
     Route: 041
     Dates: start: 20110514, end: 20110514
  23. LASIX [Concomitant]
     Indication: OEDEMA
     Dosage: 20 MG, UNK
     Route: 041
     Dates: start: 20110725, end: 20110725
  24. TS-1 [Suspect]
     Dosage: 25 MG, 2X/DAY (DAILY ADMINISTRATION)
     Route: 048
     Dates: start: 20110616, end: 20110705
  25. HIRUDOID [Concomitant]
     Indication: PROPHYLAXIS
     Dosage: UNK
     Dates: start: 20110427
  26. LOCOID [Concomitant]
     Indication: PROPHYLAXIS
     Dosage: UNK
     Dates: start: 20110427
  27. ACETAMINOPHEN [Concomitant]
     Indication: PAIN
     Dosage: UNK
     Route: 048
     Dates: start: 20110513
  28. ROCEPHIN [Concomitant]
     Indication: INFECTION
     Dosage: 2 G, UNK
     Route: 041
     Dates: start: 20110707, end: 20110710
  29. NAPROXEN [Concomitant]
     Indication: PYREXIA
     Dosage: 300 MG, 3X/DAY
     Route: 048
     Dates: start: 20110630
  30. MEROPENEM [Concomitant]
     Indication: INFECTION
     Dosage: 2 G, UNK
     Route: 041
     Dates: start: 20110715, end: 20110720

REACTIONS (10)
  - DISEASE PROGRESSION [None]
  - FEBRILE NEUTROPENIA [None]
  - COLON CANCER [None]
  - DIARRHOEA [None]
  - LIVER DISORDER [None]
  - JAUNDICE [None]
  - ILEUS [None]
  - STOMATITIS [None]
  - HYPOALBUMINAEMIA [None]
  - ANAEMIA [None]
